FAERS Safety Report 11391532 (Version 1)
Quarter: 2015Q3

REPORT INFORMATION
  Report Type: Spontaneous
  Country: US (occurrence: None)
  Receive Date: 20150814
  Receipt Date: 20150814
  Transmission Date: 20151125
  Serious: Yes (Other)
  Sender: FDA-Public Use
  Company Number: None

PATIENT
  Age: 10 Year
  Sex: Female
  Weight: 47.17 kg

DRUGS (3)
  1. XYZAL [Concomitant]
     Active Substance: LEVOCETIRIZINE DIHYDROCHLORIDE
  2. GUMNI-BEAR CHILDREN^S MULTIV-VITAMINS [Concomitant]
  3. CEPHALEXIN. [Suspect]
     Active Substance: CEPHALEXIN
     Indication: PARONYCHIA
     Dosage: 1 PILL
     Route: 048
     Dates: start: 20150812, end: 20150812

REACTIONS (6)
  - Chills [None]
  - Vomiting [None]
  - Sleep disorder due to general medical condition, insomnia type [None]
  - Abdominal pain [None]
  - Diarrhoea [None]
  - Abdominal pain upper [None]

NARRATIVE: CASE EVENT DATE: 20150812
